FAERS Safety Report 24232356 (Version 2)
Quarter: 2024Q3

REPORT INFORMATION
  Report Type: Spontaneous
  Country: JP (occurrence: JP)
  Receive Date: 20240821
  Receipt Date: 20240827
  Transmission Date: 20241017
  Serious: Yes (Hospitalization, Other)
  Sender: PFIZER
  Company Number: JP-MLMSERVICE-20240807-PI154586-00082-1

PATIENT
  Age: 66 Year
  Sex: Female

DRUGS (8)
  1. BEVACIZUMAB [Suspect]
     Active Substance: BEVACIZUMAB
     Indication: Neoplasm progression
     Dosage: FOUR COURSES
  2. BEVACIZUMAB [Suspect]
     Active Substance: BEVACIZUMAB
     Indication: Lung carcinoma cell type unspecified recurrent
     Dosage: MAINTENANCE THERAPY
  3. PACLITAXEL [Suspect]
     Active Substance: PACLITAXEL
     Indication: Neoplasm progression
     Dosage: FOUR COURSES
  4. PACLITAXEL [Suspect]
     Active Substance: PACLITAXEL
     Indication: Lung carcinoma cell type unspecified recurrent
  5. ATEZOLIZUMAB [Suspect]
     Active Substance: ATEZOLIZUMAB
     Indication: Neoplasm progression
     Dosage: FOUR COURSES
  6. ATEZOLIZUMAB [Suspect]
     Active Substance: ATEZOLIZUMAB
     Indication: Lung carcinoma cell type unspecified recurrent
     Dosage: MAINTENANCE THERAPY
  7. CARBOPLATIN [Suspect]
     Active Substance: CARBOPLATIN
     Indication: Lung carcinoma cell type unspecified recurrent
     Dosage: FOUR COURSES
  8. CARBOPLATIN [Suspect]
     Active Substance: CARBOPLATIN
     Indication: Neoplasm progression

REACTIONS (2)
  - Stress cardiomyopathy [Recovered/Resolved]
  - Myocardial injury [Recovered/Resolved]
